FAERS Safety Report 25009573 (Version 1)
Quarter: 2025Q1

REPORT INFORMATION
  Report Type: Spontaneous
  Country: CN (occurrence: CN)
  Receive Date: 20250225
  Receipt Date: 20250225
  Transmission Date: 20250409
  Serious: Yes (Hospitalization, Other)
  Sender: RANBAXY
  Company Number: CN-SUN PHARMACEUTICAL INDUSTRIES LTD-2025R1-495307

PATIENT
  Age: 45 Year
  Sex: Male

DRUGS (5)
  1. OXALIPLATIN [Suspect]
     Active Substance: OXALIPLATIN
     Indication: Gastric cancer
     Route: 065
     Dates: start: 20191209, end: 20200313
  2. TS-1 [Suspect]
     Active Substance: GIMERACIL\OTERACIL POTASSIUM\TEGAFUR
     Indication: Gastric cancer
     Route: 065
     Dates: start: 20191209, end: 20200313
  3. SINTILIMAB [Suspect]
     Active Substance: SINTILIMAB
     Indication: Gastric cancer
     Route: 065
     Dates: start: 20191209, end: 20200313
  4. SINTILIMAB [Suspect]
     Active Substance: SINTILIMAB
     Route: 065
     Dates: start: 20200411, end: 20200520
  5. SINTILIMAB [Suspect]
     Active Substance: SINTILIMAB
     Route: 065
     Dates: start: 20200520, end: 20200716

REACTIONS (1)
  - Disease progression [Unknown]
